FAERS Safety Report 7655816-5 (Version None)
Quarter: 2011Q3

REPORT INFORMATION
  Report Type: 
  Country: None (occurrence: None)
  Receive Date: 20110729
  Receipt Date: 20110716
  Transmission Date: 20111222
  Serious: Yes (Death, Hospitalization, Other)
  Sender: FDA-Public Use
  Company Number: NL-ACCORD-010051

PATIENT
  Age: 27 Year
  Sex: Male

DRUGS (3)
  1. CISPLATIN [Suspect]
     Indication: TESTIS CANCER
  2. BLEOMYCIN SULFATE [Suspect]
     Indication: TESTIS CANCER
  3. ETOPOSIDE [Suspect]
     Indication: TESTIS CANCER

REACTIONS (15)
  - OESOPHAGITIS [None]
  - MEDIASTINITIS [None]
  - PLEURAL EFFUSION [None]
  - LUNG INFECTION [None]
  - SUBCUTANEOUS EMPHYSEMA [None]
  - NO THERAPEUTIC RESPONSE [None]
  - RENAL FAILURE [None]
  - PNEUMONITIS [None]
  - THROMBOCYTOPENIA [None]
  - SUPERINFECTION [None]
  - LEUKOPENIA [None]
  - VOMITING [None]
  - PNEUMOMEDIASTINUM [None]
  - RESPIRATORY FAILURE [None]
  - SKIN DISORDER [None]
